FAERS Safety Report 25869059 (Version 1)
Quarter: 2025Q4

REPORT INFORMATION
  Report Type: Spontaneous
  Country: US (occurrence: US)
  Receive Date: 20251001
  Receipt Date: 20251001
  Transmission Date: 20260117
  Serious: No
  Sender: RECKITT BENCKISER
  Company Number: US-INDIVIOR US-INDV-156314-2024

PATIENT
  Age: 43 Year
  Sex: Male

DRUGS (4)
  1. SUBLOCADE [Suspect]
     Active Substance: BUPRENORPHINE
     Indication: Drug use disorder
     Dosage: UNK, QMO
     Route: 065
     Dates: start: 2023
  2. SUBLOCADE [Suspect]
     Active Substance: BUPRENORPHINE
     Dosage: UNK, QMO
     Route: 065
     Dates: start: 202401
  3. CORTISONE [Suspect]
     Active Substance: CORTISONE
     Indication: Joint injury
     Dosage: UNK
     Route: 051
     Dates: start: 20240701
  4. VRAYLAR [Suspect]
     Active Substance: CARIPRAZINE
     Indication: Drug hypersensitivity
     Dosage: UNK
     Route: 065
     Dates: start: 202407

REACTIONS (3)
  - Joint injury [Unknown]
  - Mania [Not Recovered/Not Resolved]
  - Drug hypersensitivity [Not Recovered/Not Resolved]

NARRATIVE: CASE EVENT DATE: 20240201
